FAERS Safety Report 24081700 (Version 2)
Quarter: 2024Q3

REPORT INFORMATION
  Report Type: Report from Study
  Country: US (occurrence: US)
  Receive Date: 20240712
  Receipt Date: 20240805
  Transmission Date: 20241016
  Serious: Yes (Hospitalization, Other)
  Sender: JOHNSON AND JOHNSON
  Company Number: US-JNJFOC-20240723699

PATIENT
  Age: 61 Year
  Sex: Female
  Weight: 72.64 kg

DRUGS (5)
  1. SPRAVATO [Suspect]
     Active Substance: ESKETAMINE
     Indication: Depression
     Dosage: ^56 MG, 1 TOTAL DOSE^
     Dates: start: 20230815, end: 20230815
  2. SPRAVATO [Suspect]
     Active Substance: ESKETAMINE
     Dosage: ^84 MG, 5 TOTAL DOSES^ CONFLICTINGLY LAST DOSE WAS REPORTED AS 56 MG ON 12-SEP-2023.
     Dates: start: 20230818, end: 20230926
  3. ADDERALL [Concomitant]
     Active Substance: AMPHETAMINE ASPARTATE\AMPHETAMINE SULFATE\DEXTROAMPHETAMINE SACCHARATE\DEXTROAMPHETAMINE SULFATE
     Route: 065
  4. PROVIGIL [Concomitant]
     Active Substance: MODAFINIL
     Route: 065
  5. KLONOPIN [Concomitant]
     Active Substance: CLONAZEPAM
     Route: 065

REACTIONS (17)
  - Suicidal ideation [Recovered/Resolved]
  - Hallucination, visual [Unknown]
  - Alcoholism [Unknown]
  - Psychotic disorder [Recovered/Resolved]
  - Post-traumatic stress disorder [Unknown]
  - Bulimia nervosa [Unknown]
  - Agitation [Recovering/Resolving]
  - Drug ineffective [Unknown]
  - Malaise [Unknown]
  - Personality change [Unknown]
  - Anger [Unknown]
  - Crying [Unknown]
  - Incoherent [Unknown]
  - Feeling abnormal [Unknown]
  - Thinking abnormal [Unknown]
  - Memory impairment [Unknown]
  - Pollakiuria [Unknown]

NARRATIVE: CASE EVENT DATE: 20230101
